FAERS Safety Report 15301257 (Version 1)
Quarter: 2018Q3

REPORT INFORMATION
  Report Type: Spontaneous
  Country: SE (occurrence: SE)
  Receive Date: 20180821
  Receipt Date: 20180821
  Transmission Date: 20181010
  Serious: Yes (Hospitalization)
  Sender: FDA-Public Use
  Company Number: SE-PFIZER INC-2018280797

PATIENT
  Age: 81 Year
  Sex: Female

DRUGS (7)
  1. CALCICHEW D3 [Concomitant]
     Active Substance: CALCIUM\CHOLECALCIFEROL
     Dosage: UNK
  2. BETOLVEX /00056201/ [Concomitant]
     Active Substance: CYANOCOBALAMIN
     Dosage: EVERY THIRD MONTHS
  3. LYRICA [Interacting]
     Active Substance: PREGABALIN
     Dosage: 25 MG, (EVERY THIRD DAY)
     Dates: end: 20180512
  4. LYRICA [Suspect]
     Active Substance: PREGABALIN
     Indication: MUSCLE SPASMS
     Dosage: 600 MG, DAILY
     Dates: start: 201505
  5. BEHEPAN /00056201/ [Concomitant]
     Active Substance: CYANOCOBALAMIN
     Dosage: EVERY THIRD MONTH
  6. LEVAXIN [Concomitant]
     Active Substance: LEVOTHYROXINE SODIUM
     Dosage: UNK
  7. MAGNESIUM [Concomitant]
     Active Substance: MAGNESIUM
     Dosage: UNK

REACTIONS (6)
  - Malaise [Unknown]
  - Drug ineffective for unapproved indication [Unknown]
  - Sepsis [Unknown]
  - Pyelitis [Unknown]
  - Syncope [Unknown]
  - Alcohol interaction [Unknown]

NARRATIVE: CASE EVENT DATE: 2017
